FAERS Safety Report 23914760 (Version 1)
Quarter: 2024Q2

REPORT INFORMATION
  Report Type: Spontaneous
  Country: US (occurrence: None)
  Receive Date: 20240528
  Receipt Date: 20240528
  Transmission Date: 20240716
  Serious: Yes (Hospitalization)
  Sender: FDA-Public Use
  Company Number: None

PATIENT
  Sex: Female

DRUGS (1)
  1. REMICADE [Suspect]
     Active Substance: INFLIXIMAB
     Dosage: OTHER STRENGTH : 100MG/VL ;?OTHER QUANTITY : 5MG/KG;?OTHER FREQUENCY : EVERY 8 WEEKS;?
     Route: 042
     Dates: start: 202303

REACTIONS (1)
  - Asthma [None]
